FAERS Safety Report 20499781 (Version 4)
Quarter: 2022Q1

REPORT INFORMATION
  Report Type: Spontaneous
  Country: PL (occurrence: PL)
  Receive Date: 20220222
  Receipt Date: 20220316
  Transmission Date: 20220423
  Serious: Yes (Hospitalization, Other)
  Sender: FDA-Public Use
  Company Number: PL-SUN PHARMACEUTICAL INDUSTRIES LTD-2022RR-326510

PATIENT
  Age: 18 Year
  Sex: Female

DRUGS (20)
  1. OLANZAPINE [Suspect]
     Active Substance: OLANZAPINE
     Indication: Depression
     Dosage: 20 MILLIGRAM (GRADUALLY INCREASING DOSES UP TO 20 MG)
     Route: 065
  2. OLANZAPINE [Suspect]
     Active Substance: OLANZAPINE
     Dosage: 10 MILLIGRAM
     Route: 065
  3. OLANZAPINE [Suspect]
     Active Substance: OLANZAPINE
     Dosage: 15 MILLIGRAM
     Route: 065
  4. OLANZAPINE [Suspect]
     Active Substance: OLANZAPINE
     Dosage: INCREASING DOSE UPTO 20 MG, THEN DECREASE TO 15 MG
     Route: 065
  5. SERTRALINE HYDROCHLORIDE [Suspect]
     Active Substance: SERTRALINE HYDROCHLORIDE
     Indication: Bipolar disorder
     Dosage: 50 MILLIGRAM (50 MILLIGRAM, UNK)
     Route: 065
  6. SERTRALINE HYDROCHLORIDE [Suspect]
     Active Substance: SERTRALINE HYDROCHLORIDE
     Indication: Mental impairment
  7. CARBAMAZEPINE [Suspect]
     Active Substance: CARBAMAZEPINE
     Indication: Depression
     Dosage: 400 MILLIGRAM (400 MILLIGRAM, UNK)
     Route: 065
  8. CARBAMAZEPINE [Suspect]
     Active Substance: CARBAMAZEPINE
     Indication: Affective disorder
  9. CARBAMAZEPINE [Suspect]
     Active Substance: CARBAMAZEPINE
     Indication: Bipolar disorder
  10. LITHIUM [Suspect]
     Active Substance: LITHIUM
     Indication: Depression
     Dosage: 2 DOSAGE FORM, ONCE A DAY (2 DOSAGE FORM, DAILY, TABLETS, INITIALLY 2 TABLETS DAILY, UPTITRATED TO 5
     Route: 065
  11. LITHIUM [Suspect]
     Active Substance: LITHIUM
     Indication: Mood altered
     Dosage: 2 DOSAGE FORM, ONCE A DAY (2 DOSAGE FORM, DAILY, TABLETS)
     Route: 065
  12. LITHIUM [Suspect]
     Active Substance: LITHIUM
     Dosage: 5 DOSAGE FORM (INITIALLY 2 TABLETS DAILY, UPTITRATED TO 5 TABLETS DAILY)
     Route: 065
  13. LITHIUM [Suspect]
     Active Substance: LITHIUM
     Dosage: UNK, STARTED FROM 2 TABLES AND INCREASED TO 5 TABLETS
     Route: 048
  14. RISPERDAL [Suspect]
     Active Substance: RISPERIDONE
     Indication: Depression
     Dosage: 1 MILLIGRAM, ONCE A DAY
     Route: 065
  15. RISPERDAL [Suspect]
     Active Substance: RISPERIDONE
     Indication: Bipolar disorder
     Dosage: 2 MILLIGRAM, ONCE A DAY
     Route: 065
  16. RISPERDAL [Suspect]
     Active Substance: RISPERIDONE
     Dosage: STRENGTH: 1 MG, IN COMBINATION WITH SERTRALINE 50 MG
     Route: 065
  17. HALDOL [Concomitant]
     Active Substance: HALOPERIDOL
     Indication: Product used for unknown indication
     Dosage: 5 MILLIGRAM
     Route: 030
  18. CLONAZEPAM [Concomitant]
     Active Substance: CLONAZEPAM
     Indication: Product used for unknown indication
     Dosage: 1 MILLIGRAM
     Route: 030
  19. LEVOTHYROXINE [Concomitant]
     Active Substance: LEVOTHYROXINE
     Indication: Hypothyroidism
     Dosage: 25 MICROGRAM
     Route: 065
  20. LEVOTHYROXINE [Concomitant]
     Active Substance: LEVOTHYROXINE
     Dosage: 50 MICROGRAM
     Route: 065

REACTIONS (9)
  - Amenorrhoea [Unknown]
  - Hyperprolactinaemia [Recovered/Resolved]
  - Somnolence [Recovered/Resolved]
  - Euphoric mood [Recovered/Resolved]
  - Bipolar disorder [Recovered/Resolved]
  - Therapy partial responder [Unknown]
  - Condition aggravated [Unknown]
  - Body mass index increased [Recovered/Resolved]
  - Drug ineffective [Unknown]
